FAERS Safety Report 6914684-7 (Version None)
Quarter: 2010Q3

REPORT INFORMATION
  Report Type: 
  Country: None (occurrence: None)
  Receive Date: 20100805
  Receipt Date: 20100805
  Transmission Date: 20110219
  Serious: Yes (Other)
  Sender: FDA-Public Use
  Company Number: None

PATIENT
  Sex: Female
  Weight: 66.2 kg

DRUGS (1)
  1. DIFLUCAN [Suspect]
     Indication: PNEUMONIA CRYPTOCOCCAL
     Dosage: 200MG ONCE DAILY BY MOUTH
     Dates: start: 20100614, end: 20100714

REACTIONS (4)
  - ELECTROCARDIOGRAM QT PROLONGED [None]
  - NAUSEA [None]
  - RIB FRACTURE [None]
  - SYNCOPE [None]
